FAERS Safety Report 6727842-1 (Version None)
Quarter: 2010Q2

REPORT INFORMATION
  Report Type: 
  Country: None (occurrence: None)
  Receive Date: 20100517
  Receipt Date: 20100506
  Transmission Date: 20101027
  Serious: No
  Sender: FDA-Public Use
  Company Number: US-ROXANE LABORATORIES, INC.-2010-RO-00576RO

PATIENT
  Age: 44 Year
  Sex: Male

DRUGS (3)
  1. FLUTICASONE PROPIONATE [Suspect]
     Indication: HEADACHE
     Route: 045
  2. FLUTICASONE PROPIONATE [Suspect]
     Indication: DIZZINESS
  3. CLARITIN [Concomitant]
     Indication: HYPERSENSITIVITY

REACTIONS (2)
  - BLOOD PRESSURE INCREASED [None]
  - HEADACHE [None]
